FAERS Safety Report 4855610-4 (Version None)
Quarter: 2005Q4

REPORT INFORMATION
  Report Type: 
  Country: None (occurrence: None)
  Receive Date: 20051214
  Receipt Date: 20051128
  Transmission Date: 20060501
  Serious: Yes (Death)
  Sender: FDA-Public Use
  Company Number: 10904

PATIENT
  Age: 34 Year
  Sex: Male
  Weight: 49.4421 kg

DRUGS (1)
  1. BLEOMYCIN [Suspect]
     Dosage: 30000 UNITS IV
     Route: 042
     Dates: start: 20040827

REACTIONS (1)
  - SUDDEN DEATH [None]
